FAERS Safety Report 6293578-7 (Version None)
Quarter: 2009Q3

REPORT INFORMATION
  Report Type: 
  Country: None (occurrence: None)
  Receive Date: 20090730
  Receipt Date: 20090724
  Transmission Date: 20100115
  Serious: Yes (Other)
  Sender: FDA-Public Use
  Company Number: 2009008182

PATIENT
  Age: 67 Year
  Sex: Male
  Weight: 130.1823 kg

DRUGS (2)
  1. TREANDA [Suspect]
     Dosage: (140 MG,RECEIVED 2 CYCLES), INTRAVENOUS
     Route: 042
     Dates: start: 20090501, end: 20090524
  2. RITUXAN [Suspect]
     Indication: CHRONIC LYMPHOCYTIC LEUKAEMIA
     Dosage: (375 MQ/M2,ONCE)
     Dates: start: 20090528, end: 20090528

REACTIONS (1)
  - APLASIA PURE RED CELL [None]
